FAERS Safety Report 10330488 (Version 1)
Quarter: 2014Q3

REPORT INFORMATION
  Report Type: Spontaneous
  Country: CA (occurrence: CA)
  Receive Date: 20140722
  Receipt Date: 20140722
  Transmission Date: 20150326
  Serious: Yes (Death)
  Sender: FDA-Public Use
  Company Number: CA-ACTELION-A-NJ2014-102090

PATIENT
  Age: 34 Year
  Sex: Female
  Weight: 62.13 kg

DRUGS (4)
  1. VELETRI [Suspect]
     Active Substance: EPOPROSTENOL
     Indication: PULMONARY ARTERIAL HYPERTENSION
     Route: 042
  2. COUMADIN [Concomitant]
     Active Substance: WARFARIN SODIUM
  3. SULFASALAZINE. [Concomitant]
     Active Substance: SULFASALAZINE
  4. PURINETHOL [Concomitant]
     Active Substance: MERCAPTOPURINE

REACTIONS (1)
  - Death [Fatal]

NARRATIVE: CASE EVENT DATE: 20140709
